FAERS Safety Report 5329300-8 (Version None)
Quarter: 2007Q2

REPORT INFORMATION
  Report Type: 
  Country: None (occurrence: None)
  Receive Date: 20070518
  Receipt Date: 20070508
  Transmission Date: 20071010
  Serious: Yes (Other)
  Sender: FDA-Public Use
  Company Number: US-PFIZER INC-2007038010

PATIENT
  Sex: Female
  Weight: 93 kg

DRUGS (1)
  1. CHANTIX [Suspect]
     Indication: SMOKING CESSATION THERAPY
     Dates: start: 20070430, end: 20070503

REACTIONS (3)
  - FEELING HOT [None]
  - MUSCLE TWITCHING [None]
  - SWELLING FACE [None]
